FAERS Safety Report 5501345-4 (Version None)
Quarter: 2007Q4

REPORT INFORMATION
  Report Type: 
  Country: None (occurrence: None)
  Receive Date: 20071026
  Receipt Date: 20070914
  Transmission Date: 20080405
  Serious: Yes (Hospitalization)
  Sender: FDA-Public Use
  Company Number: 20074100

PATIENT
  Age: 25 Year
  Sex: Male

DRUGS (1)
  1. LIORESAL [Suspect]
     Indication: MUSCLE SPASTICITY
     Dosage: 448 MCG, DAILY, INTRATHECAL
     Route: 037

REACTIONS (10)
  - CONDITION AGGRAVATED [None]
  - DIPLOPIA [None]
  - HYPERTONIA [None]
  - HYPOTONIA [None]
  - MUSCLE SPASTICITY [None]
  - MUSCULAR WEAKNESS [None]
  - NAUSEA [None]
  - OVERDOSE [None]
  - VISION BLURRED [None]
  - VOMITING [None]
